FAERS Safety Report 9054632 (Version 3)
Quarter: 2013Q2

REPORT INFORMATION
  Report Type: Spontaneous
  Country: US (occurrence: US)
  Receive Date: 20130208
  Receipt Date: 20130614
  Transmission Date: 20140414
  Serious: Yes (Hospitalization)
  Sender: FDA-Public Use
  Company Number: US-BAYER-2013-015135

PATIENT
  Age: 30 Year
  Sex: Female
  Weight: 117.91 kg

DRUGS (2)
  1. BEYAZ [Suspect]
     Dosage: UNK
     Dates: start: 201101
  2. YAZ [Suspect]
     Indication: OVARIAN CYST
     Dosage: UNK

REACTIONS (7)
  - Pulmonary embolism [None]
  - Deep vein thrombosis [None]
  - Pain [None]
  - Emotional distress [None]
  - Injury [None]
  - Anxiety [None]
  - Psychological trauma [None]
